FAERS Safety Report 8274882-X (Version None)
Quarter: 2012Q2

REPORT INFORMATION
  Report Type: 
  Country: None (occurrence: None)
  Receive Date: 20120411
  Receipt Date: 20120405
  Transmission Date: 20120825
  Serious: Yes (Hospitalization)
  Sender: FDA-Public Use
  Company Number: US-B.I. PHARMACEUTICALS,INC./RIDGEFIELD-2012-BP-06427BP

PATIENT
  Sex: Male

DRUGS (11)
  1. ALBUTEROL [Concomitant]
     Indication: ASTHMA
     Route: 055
  2. LYRICA [Concomitant]
     Indication: NEUROPATHY PERIPHERAL
     Dosage: 300 MG
     Route: 048
  3. RISPERDAL [Concomitant]
     Indication: BIPOLAR DISORDER
  4. LAMICTAL [Concomitant]
     Indication: DEPRESSION
  5. SPIRIVA [Suspect]
     Indication: EMPHYSEMA
     Dosage: 18 MCG
     Route: 055
  6. CHANTIX [Suspect]
     Indication: SMOKING CESSATION THERAPY
     Route: 048
     Dates: start: 20111001
  7. FLOMAX [Concomitant]
     Indication: BENIGN PROSTATIC HYPERPLASIA
     Dates: start: 20000101
  8. METFORMIN HCL [Concomitant]
     Indication: DIABETES MELLITUS
     Dosage: 500 MG
     Route: 048
  9. CYMBALTA [Concomitant]
     Indication: DEPRESSION
  10. PROAIR HFA [Concomitant]
     Indication: ASTHMA
  11. CYMBALTA [Concomitant]
     Indication: BIPOLAR DISORDER
     Dosage: 30 MG
     Route: 048

REACTIONS (11)
  - CEREBROVASCULAR ACCIDENT [None]
  - CHEST PAIN [None]
  - BACK INJURY [None]
  - ALCOHOL POISONING [None]
  - INFECTION [None]
  - MYOCARDIAL INFARCTION [None]
  - PNEUMONIA [None]
  - JOINT INJURY [None]
  - OEDEMA PERIPHERAL [None]
  - CHOLELITHIASIS [None]
  - LOCALISED INFECTION [None]
